FAERS Safety Report 16461785 (Version 5)
Quarter: 2020Q1

REPORT INFORMATION
  Report Type: Spontaneous
  Country: US (occurrence: US)
  Receive Date: 20190621
  Receipt Date: 20200116
  Transmission Date: 20200409
  Serious: Yes (Other)
  Sender: FDA-Public Use
  Company Number: US-GLAXOSMITHKLINE-US2019GSK109833

PATIENT
  Sex: Male

DRUGS (5)
  1. OMEPRAZOLE. [Suspect]
     Active Substance: OMEPRAZOLE
     Indication: GASTROOESOPHAGEAL REFLUX DISEASE
     Dosage: MG
     Route: 048
  2. RANITIDINE. [Suspect]
     Active Substance: RANITIDINE
     Indication: PRODUCT USED FOR UNKNOWN INDICATION
     Dosage: 150 MG, QD
     Route: 065
  3. PREVACID [Suspect]
     Active Substance: LANSOPRAZOLE
     Indication: GASTROOESOPHAGEAL REFLUX DISEASE
     Dosage: UNK, BID
     Route: 065
  4. PREVACID [Suspect]
     Active Substance: LANSOPRAZOLE
     Indication: GASTROOESOPHAGEAL REFLUX DISEASE
     Dosage: 15 MG, QD
     Route: 065
  5. PREVACID [Suspect]
     Active Substance: LANSOPRAZOLE
     Dosage: UNK, BID
     Route: 065

REACTIONS (21)
  - Chronic kidney disease [Unknown]
  - Urinary hesitation [Unknown]
  - Renal injury [Unknown]
  - Dialysis [Unknown]
  - Hyperchlorhydria [Unknown]
  - Urinary tract disorder [Unknown]
  - Nephropathy [Unknown]
  - Nephrogenic anaemia [Unknown]
  - Rebound effect [Unknown]
  - Renal impairment [Unknown]
  - Diabetic nephropathy [Unknown]
  - Bladder neck obstruction [Unknown]
  - Proteinuria [Unknown]
  - Haemoglobinuria [Unknown]
  - Glycosuria [Unknown]
  - Renal failure [Unknown]
  - Renal vessel disorder [Unknown]
  - Urinary incontinence [Unknown]
  - Urine abnormality [Unknown]
  - Urine flow decreased [Unknown]
  - Myoglobinuria [Unknown]
